FAERS Safety Report 10330797 (Version 1)
Quarter: 2014Q3

REPORT INFORMATION
  Report Type: Spontaneous
  Country: US (occurrence: None)
  Receive Date: 20140718
  Receipt Date: 20140718
  Transmission Date: 20150326
  Serious: Yes (Disabling)
  Sender: FDA-Public Use
  Company Number: None

PATIENT
  Age: 48 Year
  Sex: Female
  Weight: 102.06 kg

DRUGS (2)
  1. CIPROFLOXACIN HCL 500 MG TADRL 2XDAY FOR 7 DAYS [Suspect]
     Active Substance: CIPROFLOXACIN HYDROCHLORIDE
     Indication: KIDNEY INFECTION
     Dosage: 2 PILLS
     Route: 048
     Dates: start: 20140602, end: 20140606
  2. CIPROFLOXACIN HCL 500 MG TADRL 2XDAY FOR 7 DAYS [Suspect]
     Active Substance: CIPROFLOXACIN HYDROCHLORIDE
     Indication: BACTERIAL INFECTION
     Dosage: 2 PILLS
     Route: 048
     Dates: start: 20140602, end: 20140606

REACTIONS (3)
  - Hypoaesthesia [None]
  - Pain in extremity [None]
  - Feeling abnormal [None]

NARRATIVE: CASE EVENT DATE: 20140606
